FAERS Safety Report 23987331 (Version 2)
Quarter: 2024Q2

REPORT INFORMATION
  Report Type: Spontaneous
  Country: CN (occurrence: CN)
  Receive Date: 20240618
  Receipt Date: 20240621
  Transmission Date: 20240715
  Serious: Yes (Life-Threatening, Hospitalization, Other)
  Sender: FDA-Public Use
  Company Number: CN-PFIZER INC-202400193825

PATIENT
  Age: 43 Year
  Sex: Female

DRUGS (5)
  1. METHYLPREDNISOLONE [Suspect]
     Active Substance: METHYLPREDNISOLONE
     Indication: Immunomodulatory therapy
     Dosage: UNK, PREDNISONE MEDICATION WAS SWITCHED TO AN EQUIVALENT DOSE OF METHYLPREDNISOLONE
     Dates: start: 2016
  2. METHYLPREDNISOLONE [Suspect]
     Active Substance: METHYLPREDNISOLONE
     Dosage: 16 MG, 1X/DAY
     Dates: start: 20170324
  3. METHYLPREDNISOLONE [Suspect]
     Active Substance: METHYLPREDNISOLONE
     Dosage: 4 MG, DAILY
  4. PREDNISONE [Suspect]
     Active Substance: PREDNISONE
     Indication: Glomerulonephritis membranous
     Dosage: 30 MG, DAILY
     Dates: start: 20160505, end: 201608
  5. CYCLOSPORINE [Suspect]
     Active Substance: CYCLOSPORINE
     Indication: Glomerulonephritis membranous
     Dosage: 50 MG, 2X/DAY
     Dates: start: 20160505, end: 2017

REACTIONS (7)
  - Cerebral nocardiosis [Recovered/Resolved]
  - Pulmonary nocardiosis [Recovered/Resolved]
  - Nocardiosis [Recovered/Resolved]
  - Coma [Unknown]
  - Cardiac arrest [Recovered/Resolved]
  - Respiratory arrest [Unknown]
  - Seizure [Recovered/Resolved]
